FAERS Safety Report 9927943 (Version 2)
Quarter: 2014Q1

REPORT INFORMATION
  Report Type: Spontaneous
  Country: US (occurrence: US)
  Receive Date: 20140227
  Receipt Date: 20140319
  Transmission Date: 20141002
  Serious: No
  Sender: FDA-Public Use
  Company Number: US-PFIZER INC-2014054340

PATIENT
  Sex: Male

DRUGS (2)
  1. EFFEXOR XR [Suspect]
     Indication: PAIN
     Dosage: 75 MG, UNK
     Route: 048
  2. EFFEXOR XR [Suspect]
     Indication: DEPRESSION

REACTIONS (2)
  - Muscle twitching [Unknown]
  - Intentional drug misuse [Unknown]
